FAERS Safety Report 25636462 (Version 1)
Quarter: 2025Q3

REPORT INFORMATION
  Report Type: Spontaneous
  Country: CH (occurrence: CH)
  Receive Date: 20250803
  Receipt Date: 20250803
  Transmission Date: 20251021
  Serious: Yes (Other)
  Sender: DIFGEN PHARMACEUTICALS LLC
  Company Number: CH-Difgen-012100

PATIENT
  Age: 65 Year
  Sex: Female

DRUGS (1)
  1. NICOTINE [Suspect]
     Active Substance: NICOTINE
     Indication: Product used for unknown indication
     Route: 065

REACTIONS (1)
  - Drug abuse [Unknown]
